FAERS Safety Report 5260942-4 (Version None)
Quarter: 2007Q1

REPORT INFORMATION
  Report Type: 
  Country: None (occurrence: None)
  Receive Date: 20070309
  Receipt Date: 20070228
  Transmission Date: 20070707
  Serious: Yes (Hospitalization, Other)
  Sender: FDA-Public Use
  Company Number: RU-SHR-RU-2007-006987

PATIENT

DRUGS (1)
  1. BETASERON [Suspect]
     Dosage: UNK, EVERY 2D
     Route: 058
     Dates: start: 20060128

REACTIONS (4)
  - ASTHENIA [None]
  - HYPERTHERMIA [None]
  - INJECTION SITE NECROSIS [None]
  - SENSATION OF HEAVINESS [None]
